FAERS Safety Report 15030181 (Version 2)
Quarter: 2020Q3

REPORT INFORMATION
  Report Type: Spontaneous
  Country: NL (occurrence: NL)
  Receive Date: 20180619
  Receipt Date: 20200720
  Transmission Date: 20201102
  Serious: Yes (Congenital Anomaly)
  Sender: FDA-Public Use
  Company Number: NL-TEVA-2018-NL-910586

PATIENT
  Sex: Male

DRUGS (2)
  1. FOLIUMZUUR [Concomitant]
     Active Substance: FOLIC ACID
     Dosage: THERAPY START AND END STATE: ASKU
  2. LAMOTRIGINE DISPERTABLET 50MG TABLET, 50 MG (MILLIGRAM) [Suspect]
     Active Substance: LAMOTRIGINE
     Indication: EPILEPSY
     Dosage: 2DD,100 MG,THERAPY START  DATE : ASKU ,THERAPY END DATE : ASKU
     Route: 065

REACTIONS (1)
  - Spina bifida [Not Recovered/Not Resolved]
